FAERS Safety Report 9359266 (Version 2)
Quarter: 2013Q3

REPORT INFORMATION
  Report Type: Spontaneous
  Country: US (occurrence: US)
  Receive Date: 20130620
  Receipt Date: 20130711
  Transmission Date: 20140515
  Serious: Yes (Other)
  Sender: FDA-Public Use
  Company Number: US-MYLANLABS-2013S1012832

PATIENT
  Age: 56 Year
  Sex: Female
  Weight: 70.31 kg

DRUGS (8)
  1. LEVETIRACETAM TABLETS [Suspect]
     Indication: CONVULSION
     Route: 048
     Dates: start: 2002, end: 201211
  2. LEVETIRACETAM TABLETS [Suspect]
     Indication: CONVULSION
     Route: 048
     Dates: start: 201211, end: 201211
  3. LEVETIRACETAM TABLETS [Suspect]
     Indication: CONVULSION
     Route: 048
     Dates: start: 201211, end: 201211
  4. LEVETIRACETAM TABLETS [Suspect]
     Indication: CONVULSION
     Route: 048
     Dates: start: 201211, end: 201211
  5. LEVETIRACETAM TABLETS [Suspect]
     Indication: CONVULSION
     Route: 048
     Dates: start: 201211, end: 201211
  6. LEVETIRACETAM TABLETS [Suspect]
     Indication: CONVULSION
     Dosage: 125MG (USING 250MG TABLET) IN THE MORNING AND 250MG IN THE EVENING
     Route: 048
     Dates: start: 201302, end: 201302
  7. LEVETIRACETAM TABLETS [Suspect]
     Indication: CONVULSION
     Route: 048
     Dates: start: 201302
  8. LAMOTRIGINE [Suspect]
     Indication: CONVULSION
     Route: 048
     Dates: start: 201211

REACTIONS (6)
  - Simple partial seizures [Recovered/Resolved]
  - Depression [Recovering/Resolving]
  - Wrong technique in drug usage process [Recovered/Resolved]
  - Dizziness [Not Recovered/Not Resolved]
  - Headache [Not Recovered/Not Resolved]
  - Disorientation [Not Recovered/Not Resolved]
